FAERS Safety Report 18321508 (Version 8)
Quarter: 2021Q2

REPORT INFORMATION
  Report Type: Spontaneous
  Country: CA (occurrence: CA)
  Receive Date: 20200928
  Receipt Date: 20210524
  Transmission Date: 20210717
  Serious: Yes (Other)
  Sender: FDA-Public Use
  Company Number: CA-PFIZER INC-2020261331

PATIENT
  Age: 60 Year
  Sex: Female

DRUGS (11)
  1. XELJANZ XR [Suspect]
     Active Substance: TOFACITINIB CITRATE
     Indication: CROHN^S DISEASE
     Dosage: 11 MG, ONCE A DAY
     Route: 048
     Dates: start: 202011, end: 20210406
  2. XELJANZ XR [Suspect]
     Active Substance: TOFACITINIB CITRATE
     Indication: RHEUMATOID ARTHRITIS
     Dosage: 11 MG, ONCE A DAY
     Route: 048
     Dates: start: 20200622, end: 202011
  3. ARAVA [Concomitant]
     Active Substance: LEFLUNOMIDE
     Indication: CROHN^S DISEASE
     Dosage: 20 MG, 1X/DAY
     Route: 065
  4. CRESTOR [Concomitant]
     Active Substance: ROSUVASTATIN CALCIUM
     Dosage: UNK
     Route: 065
  5. PREDNISONE. [Concomitant]
     Active Substance: PREDNISONE
     Dosage: 5 MG, 1X/DAY
     Route: 065
  6. NEXIUM [Concomitant]
     Active Substance: ESOMEPRAZOLE MAGNESIUM
     Dosage: UNK
     Route: 065
  7. RIFAMPIN. [Concomitant]
     Active Substance: RIFAMPIN
     Dosage: 600 MG, DAILY (300 MG, 2 TABLETS)
     Route: 065
     Dates: start: 20200521
  8. PLAQUENIL [Concomitant]
     Active Substance: HYDROXYCHLOROQUINE SULFATE
     Dosage: 200 MG OD ALTERNATE (ALT.) 200 MG BID
     Route: 065
  9. PREDNISONE. [Concomitant]
     Active Substance: PREDNISONE
     Dosage: 10 MG, 1X/DAY
  10. LEFLUNOMIDE. [Concomitant]
     Active Substance: LEFLUNOMIDE
     Dosage: 20 MG, 1X/DAY
     Route: 065
  11. PREDNISONE. [Concomitant]
     Active Substance: PREDNISONE
     Dosage: 10 MG, 1X/DAY (TAPERING)

REACTIONS (32)
  - Multiple sclerosis [Unknown]
  - Rash macular [Unknown]
  - Blister [Unknown]
  - Joint swelling [Recovering/Resolving]
  - Insomnia [Unknown]
  - Loss of personal independence in daily activities [Unknown]
  - Blood pressure increased [Unknown]
  - Musculoskeletal chest pain [Unknown]
  - Joint effusion [Unknown]
  - Pruritus [Unknown]
  - Tuberculosis [Recovered/Resolved]
  - Atrial fibrillation [Not Recovered/Not Resolved]
  - Therapeutic product effect incomplete [Unknown]
  - Peripheral swelling [Unknown]
  - Oropharyngeal pain [Unknown]
  - Polymyalgia rheumatica [Unknown]
  - Condition aggravated [Unknown]
  - Heart rate increased [Unknown]
  - Hypotension [Recovered/Resolved]
  - Abdominal distension [Unknown]
  - Bone deformity [Unknown]
  - Abdominal pain upper [Unknown]
  - Vomiting [Unknown]
  - Eye disorder [Unknown]
  - Hypertension [Recovered/Resolved]
  - Tenderness [Unknown]
  - Melanocytic naevus [Unknown]
  - Gait disturbance [Unknown]
  - Dyspnoea [Unknown]
  - Malaise [Unknown]
  - Myocardial infarction [Unknown]
  - Central nervous system lesion [Unknown]

NARRATIVE: CASE EVENT DATE: 2020
